FAERS Safety Report 18537091 (Version 1)
Quarter: 2020Q4

REPORT INFORMATION
  Report Type: Report from Study
  Country: CA (occurrence: CA)
  Receive Date: 20201123
  Receipt Date: 20201123
  Transmission Date: 20210114
  Serious: Yes (Other)
  Sender: FDA-Public Use
  Company Number: CA-009507513-1908CAN000861

PATIENT
  Sex: Female

DRUGS (5)
  1. PEMBROLIZUMAB. [Suspect]
     Active Substance: PEMBROLIZUMAB
     Dosage: STRENGTH 2MG/KG, 112 MILLIGRAM, Q3W (ALSO REPORTED AS CYCLICAL)
     Route: 042
     Dates: start: 20191226
  2. PEMBROLIZUMAB. [Suspect]
     Active Substance: PEMBROLIZUMAB
     Indication: NON-SMALL CELL LUNG CANCER METASTATIC
     Dosage: STRENGTH 2MG/KG, 112 MILLIGRAM, Q3W (ALSO REPORTED AS CYCLICAL)
     Route: 042
     Dates: start: 20190417, end: 2019
  3. CARBOPLATIN. [Suspect]
     Active Substance: CARBOPLATIN
     Indication: PRODUCT USED FOR UNKNOWN INDICATION
     Dosage: FOR 2 CYCLES; FORMULATION SOLUTION INTRAVENOUS
     Route: 065
     Dates: start: 2019, end: 2019
  4. ALIMTA [Suspect]
     Active Substance: PEMETREXED DISODIUM
     Indication: PRODUCT USED FOR UNKNOWN INDICATION
     Dosage: UNK, CYCLICAL; FORMULATION: POWDER FOR SOLUTION INTRAVENOUS
     Route: 065
     Dates: start: 2019
  5. PEMBROLIZUMAB. [Suspect]
     Active Substance: PEMBROLIZUMAB
     Indication: NON-SMALL CELL LUNG CANCER
     Dosage: STRENGTH 2MG/KG, 112 MILLIGRAM, Q3W (ALSO REPORTED AS CYCLICAL)
     Route: 042
     Dates: start: 2019, end: 201912

REACTIONS (14)
  - Anaemia [Recovered/Resolved]
  - Haematotoxicity [Recovered/Resolved]
  - Off label use [Recovered/Resolved]
  - Lipase increased [Recovered/Resolved]
  - Hypercalcaemia [Recovered/Resolved]
  - Alanine aminotransferase increased [Recovered/Resolved]
  - Nausea [Recovered/Resolved]
  - Pneumonia [Unknown]
  - Hepatitis [Recovered/Resolved]
  - Vomiting [Recovered/Resolved]
  - Aspartate aminotransferase increased [Recovered/Resolved]
  - Inappropriate schedule of product administration [Recovered/Resolved]
  - Fatigue [Recovered/Resolved]
  - Asthenia [Recovered/Resolved]

NARRATIVE: CASE EVENT DATE: 2019
